FAERS Safety Report 17523348 (Version 1)
Quarter: 2020Q1

REPORT INFORMATION
  Report Type: Spontaneous
  Country: JP (occurrence: JP)
  Receive Date: 20200310
  Receipt Date: 20200310
  Transmission Date: 20200409
  Serious: Yes (Other)
  Sender: FDA-Public Use
  Company Number: JP-JNJFOC-20200303902

PATIENT
  Age: 87 Year
  Sex: Female

DRUGS (8)
  1. THYRADIN S [Concomitant]
     Active Substance: LEVOTHYROXINE SODIUM
     Dosage: 50 MICROGRAM, QD
     Route: 048
  2. CANAGLIFLOZIN [Suspect]
     Active Substance: CANAGLIFLOZIN
     Indication: TYPE 2 DIABETES MELLITUS
     Dosage: 100 MILLIGRAM, QD
     Route: 048
     Dates: start: 20200129, end: 20200204
  3. AZILVA [Concomitant]
     Active Substance: AZILSARTAN KAMEDOXOMIL
     Dosage: 40 MILLIGRAM, QD
     Route: 048
  4. NATEGLINIDE. [Concomitant]
     Active Substance: NATEGLINIDE
     Dosage: 270 MILLIGRAM, QD
     Route: 048
  5. FUROSEMIDE. [Concomitant]
     Active Substance: FUROSEMIDE
     Dosage: 20 MILLIGRAM, QD
     Route: 048
  6. PEMAFIBRATE [Concomitant]
     Active Substance: PEMAFIBRATE
     Dosage: 0.4 MILLIGRAM, QD
     Route: 048
  7. SPIRONOLACTONE. [Concomitant]
     Active Substance: SPIRONOLACTONE
     Dosage: 25 MILLIGRAM, QD
     Route: 048
  8. VOGLIBOSE [Suspect]
     Active Substance: VOGLIBOSE
     Indication: TYPE 2 DIABETES MELLITUS
     Dosage: 0.6 MILLIGRAM, QD
     Route: 048
     Dates: start: 20200129, end: 20200204

REACTIONS (1)
  - Toxic epidermal necrolysis [Recovered/Resolved]

NARRATIVE: CASE EVENT DATE: 20200131
